FAERS Safety Report 4431447-5 (Version None)
Quarter: 2004Q3

REPORT INFORMATION
  Report Type: 
  Country: None (occurrence: None)
  Receive Date: 20040818
  Receipt Date: 20040802
  Transmission Date: 20050211
  Serious: Yes (Death)
  Sender: FDA-Public Use
  Company Number: A01200403705

PATIENT
  Age: 61 Year
  Sex: Female

DRUGS (4)
  1. PLAVIX [Suspect]
     Indication: COAGULOPATHY
     Dosage: 75 MG QD, ORAL
     Route: 048
  2. IRESSA [Suspect]
     Indication: LUNG NEOPLASM MALIGNANT
     Dosage: 250 MG QD, ORAL
     Route: 048
     Dates: start: 20031113, end: 20031125
  3. ENOXAPARIN SODIUM [Suspect]
     Indication: PHLEBITIS
     Dosage: 80 MG QD; SUBCUTANEOUS
     Route: 058
  4. ESOMEPRAZOLE [Concomitant]

REACTIONS (2)
  - GASTROINTESTINAL HAEMORRHAGE [None]
  - PANCREATITIS [None]
